FAERS Safety Report 23231728 (Version 1)
Quarter: 2023Q4

REPORT INFORMATION
  Report Type: Spontaneous
  Country: US (occurrence: None)
  Receive Date: 20231125
  Receipt Date: 20231125
  Transmission Date: 20240110
  Serious: Yes (Other)
  Sender: FDA-Public Use
  Company Number: None

PATIENT
  Age: 46 Year
  Sex: Female

DRUGS (1)
  1. SUBOXONE [Suspect]
     Active Substance: BUPRENORPHINE HYDROCHLORIDE\NALOXONE HYDROCHLORIDE
     Indication: Pain

REACTIONS (6)
  - Tooth disorder [None]
  - Tooth extraction [None]
  - Endodontic procedure [None]
  - Tooth fracture [None]
  - Oral mucosal blistering [None]
  - Complication associated with device [None]

NARRATIVE: CASE EVENT DATE: 20090120
